FAERS Safety Report 9163282 (Version 1)
Quarter: 2013Q1

REPORT INFORMATION
  Report Type: Spontaneous
  Country: US (occurrence: None)
  Receive Date: 20130313
  Receipt Date: 20130313
  Transmission Date: 20140127
  Serious: Yes (Hospitalization)
  Sender: FDA-Public Use
  Company Number: None

PATIENT
  Sex: 0

DRUGS (6)
  1. PHENYTOIN [Suspect]
     Indication: CONVULSION
     Dosage: PRIOR TO ADMISSION
     Route: 048
  2. PHENYTOIN [Suspect]
     Indication: PSYCHOGENIC SEIZURE
     Dosage: PRIOR TO ADMISSION
     Route: 048
  3. AKBUTEROL/IPRATROPIUM INHALER [Concomitant]
  4. BUSPIRONE [Concomitant]
  5. CHOLECALCIFERON [Concomitant]
  6. QUETIAPINE [Concomitant]

REACTIONS (3)
  - Toxicity to various agents [None]
  - Treatment noncompliance [None]
  - Incorrect dose administered [None]
